FAERS Safety Report 22605016 (Version 1)
Quarter: 2023Q2

REPORT INFORMATION
  Report Type: Spontaneous
  Country: FR (occurrence: FR)
  Receive Date: 20230615
  Receipt Date: 20230615
  Transmission Date: 20230721
  Serious: Yes (Other)
  Sender: FDA-Public Use
  Company Number: FR-SERB-2023017781

PATIENT
  Age: 34 Year
  Sex: Female

DRUGS (7)
  1. OFLOXACIN [Interacting]
     Active Substance: OFLOXACIN
     Indication: Pneumonia bacterial
     Dosage: 200 MILLIGRAM, BID
     Route: 065
  2. TACROLIMUS [Interacting]
     Active Substance: TACROLIMUS
     Indication: Chronic allograft nephropathy
     Dosage: 0.5 MILLIGRAM, QD
     Route: 065
  3. TACROLIMUS [Interacting]
     Active Substance: TACROLIMUS
     Dosage: 3 MILLIGRAM, QD
     Route: 065
  4. TACROLIMUS [Interacting]
     Active Substance: TACROLIMUS
     Dosage: 5 MILLIGRAM, QD
     Route: 065
  5. CLARITHROMYCIN [Interacting]
     Active Substance: CLARITHROMYCIN
     Indication: Pneumonia bacterial
     Dosage: 1 GRAM, BID
     Route: 065
  6. RIFABUTIN [Interacting]
     Active Substance: RIFABUTIN
     Indication: Pneumonia bacterial
     Dosage: 300 MILLIGRAM, BID
     Route: 065
  7. ETHAMBUTOL [Concomitant]
     Active Substance: ETHAMBUTOL HYDROCHLORIDE
     Indication: Pneumonia bacterial
     Dosage: 1200 MILLIGRAM, QD
     Route: 065

REACTIONS (3)
  - Uveitis [Unknown]
  - Product use in unapproved indication [Recovered/Resolved]
  - Drug interaction [Recovered/Resolved]
